FAERS Safety Report 11336957 (Version 1)
Quarter: 2015Q3

REPORT INFORMATION
  Report Type: Spontaneous
  Country: BR (occurrence: BR)
  Receive Date: 20150804
  Receipt Date: 20150804
  Transmission Date: 20151125
  Serious: Yes (Hospitalization, Other)
  Sender: FDA-Public Use
  Company Number: BR-PFIZER INC-2012001740

PATIENT
  Age: 67 Year
  Sex: Male
  Weight: 72 kg

DRUGS (8)
  1. ENBREL [Suspect]
     Active Substance: ETANERCEPT
     Dosage: 50 MG, ONCE WEEKLY
     Route: 058
     Dates: start: 201109, end: 201504
  2. PROPANOLOL HCL [Suspect]
     Active Substance: PROPRANOLOL HYDROCHLORIDE
     Indication: HYPERTENSION
     Dosage: 40 MG, 2X/DAY
     Dates: start: 2010, end: 2015
  3. TANDRILAX [Concomitant]
     Active Substance: ACETAMINOPHEN\CAFFEINE\CARISOPRODOL\DICLOFENAC SODIUM
     Indication: PAIN
     Dosage: 750 MG, DAILY
     Dates: end: 20150430
  4. DAONIL [Suspect]
     Active Substance: GLYBURIDE
     Indication: TYPE 2 DIABETES MELLITUS
     Dosage: 5 MG, DAILY(IN FASTING)
     Dates: start: 2005
  5. TANDRILAX [Concomitant]
     Active Substance: ACETAMINOPHEN\CAFFEINE\CARISOPRODOL\DICLOFENAC SODIUM
     Indication: RHEUMATOID ARTHRITIS
  6. ENBREL [Suspect]
     Active Substance: ETANERCEPT
     Indication: RHEUMATOID ARTHRITIS
     Dosage: 25 MG, ONCE WEEKLY
     Route: 058
     Dates: start: 201009
  7. ENALAPRIL [Suspect]
     Active Substance: ENALAPRIL
     Indication: HYPERTENSION
     Dosage: UNK
     Dates: end: 2010
  8. CAPTOPRIL. [Suspect]
     Active Substance: CAPTOPRIL
     Indication: HYPERTENSION
     Dosage: 25 MG, 2X/DAY
     Dates: start: 2012, end: 2015

REACTIONS (17)
  - Injection site pruritus [Recovered/Resolved]
  - Venous occlusion [Recovered/Resolved]
  - Arthralgia [Recovered/Resolved]
  - Haemoglobin decreased [Unknown]
  - Cough [Recovered/Resolved]
  - High density lipoprotein decreased [Unknown]
  - Arterial occlusive disease [Recovered/Resolved]
  - Product quality issue [Recovered/Resolved]
  - Fatigue [Unknown]
  - Chest pain [Unknown]
  - Injection site pain [Recovered/Resolved]
  - Haematocrit decreased [Unknown]
  - Pain [Not Recovered/Not Resolved]
  - Red blood cell sedimentation rate increased [Unknown]
  - Drug effect incomplete [Unknown]
  - Rheumatoid arthritis [Unknown]
  - Dyspnoea [Unknown]

NARRATIVE: CASE EVENT DATE: 2010
